FAERS Safety Report 5361095-4 (Version None)
Quarter: 2007Q2

REPORT INFORMATION
  Report Type: 
  Country: None (occurrence: None)
  Receive Date: 20070614
  Receipt Date: 20070606
  Transmission Date: 20071010
  Serious: Yes (Hospitalization)
  Sender: FDA-Public Use
  Company Number: 163-21880-07050855

PATIENT
  Age: 68 Year
  Sex: Male

DRUGS (1)
  1. REVLIMID [Suspect]
     Indication: CHRONIC LYMPHOCYTIC LEUKAEMIA
     Dosage: 10 MG, QD X21 DAYS, ORAL
     Route: 048
     Dates: start: 20070401

REACTIONS (6)
  - ABDOMINAL PAIN [None]
  - BACK PAIN [None]
  - DYSGEUSIA [None]
  - FATIGUE [None]
  - PLATELET COUNT DECREASED [None]
  - VIRAL INFECTION [None]
